FAERS Safety Report 24385389 (Version 3)
Quarter: 2025Q1

REPORT INFORMATION
  Report Type: Spontaneous
  Country: US (occurrence: US)
  Receive Date: 20241001
  Receipt Date: 20250120
  Transmission Date: 20250408
  Serious: No
  Sender: SANOFI AVENTIS
  Company Number: US-SA-2024SA283002

PATIENT
  Sex: Female
  Weight: 50 kg

DRUGS (18)
  1. DUPIXENT [Suspect]
     Active Substance: DUPILUMAB
     Indication: Neurodermatitis
     Dosage: 300 MG, QOW
     Route: 058
  2. BUTALBITAL AND ACETAMINOPHEN [Concomitant]
     Active Substance: ACETAMINOPHEN\BUTALBITAL
  3. ONDANSETRON [Concomitant]
     Active Substance: ONDANSETRON
  4. DOXEPIN HYDROCHLORIDE [Concomitant]
     Active Substance: DOXEPIN HYDROCHLORIDE
  5. PANTOPRAZOLE [Concomitant]
     Active Substance: PANTOPRAZOLE
  6. OXYCODONE HYDROCHLORIDE [Concomitant]
     Active Substance: OXYCODONE HYDROCHLORIDE
  7. FENTANYL CITRATE [Concomitant]
     Active Substance: FENTANYL CITRATE
  8. TEMAZEPAM [Concomitant]
     Active Substance: TEMAZEPAM
  9. ALPRAZOLAM [Concomitant]
     Active Substance: ALPRAZOLAM
  10. MOVANTIK [Concomitant]
     Active Substance: NALOXEGOL OXALATE
  11. CYCLOBENZAPRINE HYDROCHLORIDE [Concomitant]
     Active Substance: CYCLOBENZAPRINE HYDROCHLORIDE
  12. HYDROXYZINE HYDROCHLORIDE [Concomitant]
     Active Substance: HYDROXYZINE HYDROCHLORIDE
  13. TRELEGY ELLIPTA [Concomitant]
     Active Substance: FLUTICASONE FUROATE\UMECLIDINIUM BROMIDE\VILANTEROL TRIFENATATE
  14. SINGULAIR [Concomitant]
     Active Substance: MONTELUKAST SODIUM
  15. FUROSEMIDE SODIUM [Concomitant]
     Active Substance: FUROSEMIDE SODIUM
  16. POTASSIUM [Concomitant]
     Active Substance: POTASSIUM
  17. THEOPHYLLINE [Concomitant]
     Active Substance: THEOPHYLLINE
  18. LIDOCAINE [Concomitant]
     Active Substance: LIDOCAINE

REACTIONS (2)
  - Muscular weakness [Unknown]
  - Cast application [Not Recovered/Not Resolved]

NARRATIVE: CASE EVENT DATE: 20241104
